FAERS Safety Report 20733760 (Version 1)
Quarter: 2022Q2

REPORT INFORMATION
  Report Type: Spontaneous
  Country: FR (occurrence: FR)
  Receive Date: 20220421
  Receipt Date: 20220421
  Transmission Date: 20220721
  Serious: Yes (Other)
  Sender: FDA-Public Use
  Company Number: None

PATIENT
  Age: 28 Year
  Sex: Male
  Weight: 70 kg

DRUGS (1)
  1. ATRACURIUM [Suspect]
     Active Substance: ATRACURIUM
     Indication: Sedation
     Route: 042
     Dates: start: 20220305, end: 20220305

REACTIONS (2)
  - Shock [Recovered/Resolved]
  - Type I hypersensitivity [Recovered/Resolved]

NARRATIVE: CASE EVENT DATE: 20220305
